FAERS Safety Report 6873827-4 (Version None)
Quarter: 2010Q3

REPORT INFORMATION
  Report Type: 
  Country: None (occurrence: None)
  Receive Date: 20100723
  Receipt Date: 20090509
  Transmission Date: 20110219
  Serious: No
  Sender: FDA-Public Use
  Company Number: US-PFIZER INC-2009179977

PATIENT
  Sex: Female
  Weight: 68 kg

DRUGS (9)
  1. CHANTIX [Suspect]
     Indication: SMOKING CESSATION THERAPY
     Dosage: FREQUENCY: EVERY DAY;
     Dates: start: 20090216, end: 20090301
  2. CHANTIX [Suspect]
     Indication: TOBACCO ABUSE
  3. LISINOPRIL [Concomitant]
     Dosage: UNK
  4. CELEXA [Concomitant]
     Dosage: UNK
  5. ADVAIR DISKUS 100/50 [Concomitant]
     Dosage: UNK
  6. PREVACID [Concomitant]
     Dosage: UNK
  7. TRAZODONE [Concomitant]
     Dosage: UNK
  8. MONTELUKAST [Concomitant]
     Dosage: UNK
  9. ALBUTEROL [Concomitant]
     Dosage: UNK

REACTIONS (9)
  - ABNORMAL DREAMS [None]
  - DYSGEUSIA [None]
  - FATIGUE [None]
  - FEELING ABNORMAL [None]
  - HEADACHE [None]
  - INSOMNIA [None]
  - NAUSEA [None]
  - VOMITING [None]
  - WEIGHT INCREASED [None]
